FAERS Safety Report 11568524 (Version 1)
Quarter: 2015Q3

REPORT INFORMATION
  Report Type: Spontaneous
  Country: US (occurrence: US)
  Receive Date: 20150916
  Receipt Date: 20150916
  Transmission Date: 20151125
  Serious: No
  Sender: FDA-Public Use
  Company Number: US-ELI_LILLY_AND_COMPANY-US200908004092

PATIENT
  Age: 82 Year
  Sex: Female

DRUGS (2)
  1. CALCIUM [Concomitant]
     Active Substance: CALCIUM
  2. FORTEO [Suspect]
     Active Substance: TERIPARATIDE
     Indication: OSTEOPOROSIS
     Dosage: UNK, UNK

REACTIONS (8)
  - Insomnia [Unknown]
  - Injection site bruising [Recovering/Resolving]
  - Stress [Unknown]
  - Injection site haemorrhage [Recovered/Resolved]
  - Pain in extremity [Unknown]
  - Injection site pain [Unknown]
  - Muscle spasms [Unknown]
  - Alopecia [Unknown]

NARRATIVE: CASE EVENT DATE: 200908
